FAERS Safety Report 21811950 (Version 1)
Quarter: 2022Q4

REPORT INFORMATION
  Report Type: Spontaneous
  Country: US (occurrence: None)
  Receive Date: 20221230
  Receipt Date: 20221230
  Transmission Date: 20230113
  Serious: No
  Sender: FDA-Public Use
  Company Number: None

PATIENT
  Age: 5 Year
  Sex: Male
  Weight: 16.5 kg

DRUGS (1)
  1. NORDITROPIN [Suspect]
     Active Substance: SOMATROPIN
     Dosage: OTHER FREQUENCY : MONDAY THRU SATURD;?
     Route: 058
     Dates: start: 20221217, end: 20221226

REACTIONS (3)
  - Anxiety [None]
  - Depression [None]
  - Behaviour disorder [None]

NARRATIVE: CASE EVENT DATE: 20221227
